FAERS Safety Report 21012142 (Version 3)
Quarter: 2023Q1

REPORT INFORMATION
  Report Type: Report from Study
  Country: DE (occurrence: DE)
  Receive Date: 20220627
  Receipt Date: 20230327
  Transmission Date: 20230418
  Serious: Yes (Hospitalization, Other)
  Sender: FDA-Public Use
  Company Number: DE-GILEAD-2022-0587276

PATIENT
  Age: 63 Year
  Sex: Female
  Weight: 88 kg

DRUGS (4)
  1. SACITUZUMAB GOVITECAN [Suspect]
     Active Substance: SACITUZUMAB GOVITECAN
     Indication: HER2 negative breast cancer
     Dosage: 1000 MG D1, D8 ON C1D1 AND C1D8
     Route: 042
     Dates: start: 20220429, end: 20220506
  2. BECLOMETHASONE DIPROPIONATE [Concomitant]
     Active Substance: BECLOMETHASONE DIPROPIONATE
     Dosage: UNK
     Dates: start: 2005
  3. OMEPRAZOLE [Concomitant]
     Active Substance: OMEPRAZOLE
     Dosage: 20 MG
     Dates: start: 2012
  4. CANDESARTAN [Concomitant]
     Active Substance: CANDESARTAN
     Dosage: 16G
     Dates: start: 2005

REACTIONS (2)
  - Enterocolitis infectious [Recovered/Resolved]
  - Overdose [Recovered/Resolved]

NARRATIVE: CASE EVENT DATE: 20220429
